FAERS Safety Report 7395120-6 (Version None)
Quarter: 2011Q2

REPORT INFORMATION
  Report Type: 
  Country: None (occurrence: None)
  Receive Date: 20110405
  Receipt Date: 20110322
  Transmission Date: 20111010
  Serious: Yes (Other)
  Sender: FDA-Public Use
  Company Number: PHHY2011US24058

PATIENT

DRUGS (8)
  1. GLEEVEC [Suspect]
     Dosage: UNK
  2. QUINAPRIL [Concomitant]
  3. METOPROLOL [Concomitant]
  4. POTASSIUM CITRATE [Concomitant]
  5. FOLIC ACID [Concomitant]
  6. ALLOPURINOL [Concomitant]
  7. LIPITOR [Concomitant]
  8. LOVAZA [Concomitant]

REACTIONS (5)
  - DIARRHOEA [None]
  - NEPHROLITHIASIS [None]
  - FAECES DISCOLOURED [None]
  - ERYTHEMA [None]
  - HAEMATOSPERMIA [None]
